FAERS Safety Report 7491944-5 (Version None)
Quarter: 2011Q1

REPORT INFORMATION
  Report Type: 
  Country: None (occurrence: None)
  Receive Date: 20110318
  Receipt Date: 20100830
  Transmission Date: 20110831
  Serious: Yes (Other)
  Sender: FDA-Public Use
  Company Number: 2010SP046651

PATIENT
  Age: 49 Year
  Sex: Male
  Weight: 116.5744 kg

DRUGS (13)
  1. RIBAVIRIN [Suspect]
     Indication: HEPATITIS C
     Dosage: 1200 MG; QD; PO
     Route: 048
     Dates: start: 20100808
  2. NEXIUM [Concomitant]
  3. AMBIEN [Concomitant]
  4. METHADONE HCL [Concomitant]
  5. PEG-INTRON [Suspect]
     Indication: HEPATITIS C
     Dosage: 150 MCG; QW; SC
     Route: 003
     Dates: start: 20100808
  6. TRAMADOL HCL [Concomitant]
  7. BISOPROLOL FUMARATE [Concomitant]
  8. PROZAC [Concomitant]
  9. AMITRIPTYLINE HCL [Concomitant]
  10. ASPIRIN [Concomitant]
  11. SEROQUEL XR [Concomitant]
  12. TRICOR [Concomitant]
  13. VERAPAMIL [Concomitant]

REACTIONS (14)
  - DYSPNOEA [None]
  - SOMNOLENCE [None]
  - DRY SKIN [None]
  - WHEEZING [None]
  - ABDOMINAL PAIN [None]
  - HAIR DISORDER [None]
  - TRANSIENT ISCHAEMIC ATTACK [None]
  - FATIGUE [None]
  - PYREXIA [None]
  - WEIGHT DECREASED [None]
  - NAUSEA [None]
  - DEPRESSION [None]
  - TRANSAMINASES INCREASED [None]
  - RASH [None]
